FAERS Safety Report 8399295-1 (Version None)
Quarter: 2012Q1

REPORT INFORMATION
  Report Type: 
  Country: None (occurrence: None)
  Receive Date: 20120323
  Receipt Date: 20110203
  Transmission Date: 20120608
  Serious: Yes (Hospitalization)
  Sender: FDA-Public Use
  Company Number: 163-21880-11020706

PATIENT
  Age: 67 Year
  Sex: Female

DRUGS (2)
  1. REVLIMID [Suspect]
     Indication: MULTIPLE MYELOMA
     Dosage: 15 MG, DAILY X 21 DAYS ON, 7 DAYS OFF, PO 15 MG, DAILY X 21 DAYS ON, 7 DAYS OFF, PO
     Route: 048
     Dates: start: 20090305, end: 20110117
  2. REVLIMID [Suspect]
     Indication: MULTIPLE MYELOMA
     Dosage: 15 MG, DAILY X 21 DAYS ON, 7 DAYS OFF, PO 15 MG, DAILY X 21 DAYS ON, 7 DAYS OFF, PO
     Route: 048
     Dates: start: 20110131

REACTIONS (2)
  - PNEUMONIA [None]
  - WHITE BLOOD CELL COUNT DECREASED [None]
